FAERS Safety Report 8827997 (Version 1)
Quarter: 2012Q4

REPORT INFORMATION
  Report Type: 
  Country: US (occurrence: US)
  Receive Date: 20121005
  Receipt Date: 20121005
  Transmission Date: 20130627
  Serious: Yes (Hospitalization)
  Sender: FDA-Public Use
  Company Number: US-BAYER-2012-102717

PATIENT
  Age: 32 Year
  Sex: Female
  Weight: 61.1 kg

DRUGS (14)
  1. YAZ [Suspect]
  2. YASMIN [Suspect]
     Indication: CONTRACEPTION
  3. SYNTHROID [Concomitant]
     Dosage: 125 ?g, UNK
     Route: 048
     Dates: start: 20090601
  4. AMOXICILLIN [Concomitant]
     Dosage: 500 mg, UNK
  5. ZOLOFT [Concomitant]
     Dosage: 100 mg, UNK
     Route: 048
     Dates: start: 20090620
  6. DILAUDID [Concomitant]
     Dosage: 2 mg, UNK
     Route: 042
     Dates: start: 20090819
  7. LEVAQUIN [Concomitant]
     Dosage: 750 mg, UNK
     Route: 042
     Dates: start: 20090819
  8. LEVAQUIN [Concomitant]
     Dosage: 500 mg [times] 1 week
     Route: 048
  9. TORADOL [Concomitant]
     Dosage: 30 mg, UNK
     Route: 042
     Dates: start: 20090819
  10. VICODIN [Concomitant]
     Indication: PAIN
     Dosage: 500mg-5mg 1-2 every 4-6 hours as needed
  11. CIPROFLOXACIN [Concomitant]
     Dosage: 500 mg, UNK
  12. AMBIEN [Concomitant]
  13. PERCOCET [Concomitant]
  14. COLACE [Concomitant]

REACTIONS (1)
  - Pulmonary embolism [Recovered/Resolved]
